FAERS Safety Report 24658732 (Version 5)
Quarter: 2025Q1

REPORT INFORMATION
  Report Type: Spontaneous
  Country: PL (occurrence: PL)
  Receive Date: 20241125
  Receipt Date: 20250326
  Transmission Date: 20250409
  Serious: Yes (Death, Disabling, Other)
  Sender: SANDOZ
  Company Number: PL-ABBVIE-20P-129-3384818-00

PATIENT
  Age: 61 Year
  Sex: Male

DRUGS (160)
  1. ACETAMINOPHEN [Suspect]
     Active Substance: ACETAMINOPHEN
     Indication: Pain
     Route: 065
  2. BICALUTAMIDE [Suspect]
     Active Substance: BICALUTAMIDE
     Indication: Prostate cancer
     Dosage: 50 MILLIGRAM, QD
     Route: 065
     Dates: start: 201603
  3. DICLOFENAC SODIUM [Suspect]
     Active Substance: DICLOFENAC SODIUM
     Indication: Pain
     Dosage: 100 MG, Q12H (100 MG, BID)
     Route: 065
  4. DOCETAXEL [Suspect]
     Active Substance: DOCETAXEL
     Indication: Chemotherapy
     Route: 065
  5. DENOSUMAB [Suspect]
     Active Substance: DENOSUMAB
     Route: 065
     Dates: start: 201603
  6. DENOSUMAB [Suspect]
     Active Substance: DENOSUMAB
     Indication: Prostate cancer
     Route: 058
     Dates: start: 201603
  7. FENTANYL [Suspect]
     Active Substance: FENTANYL
     Dosage: 200 UG, QH
     Route: 062
  8. FENTANYL [Suspect]
     Active Substance: FENTANYL
     Dosage: 200 UG, QH
     Route: 062
  9. FENTANYL [Suspect]
     Active Substance: FENTANYL
     Route: 002
  10. FENTANYL [Suspect]
     Active Substance: FENTANYL
     Dosage: 50 MICROGRAM, Q72H
     Route: 062
     Dates: start: 2016, end: 2016
  11. FENTANYL [Suspect]
     Active Substance: FENTANYL
     Route: 002
  12. FENTANYL [Suspect]
     Active Substance: FENTANYL
     Route: 048
  13. FENTANYL [Suspect]
     Active Substance: FENTANYL
     Route: 002
  14. FENTANYL [Suspect]
     Active Substance: FENTANYL
     Indication: Pain
     Route: 002
  15. FENTANYL [Suspect]
     Active Substance: FENTANYL
     Indication: Cancer pain
     Dosage: 50 UG, QD
     Route: 062
     Dates: start: 201603, end: 2016
  16. FENTANYL [Suspect]
     Active Substance: FENTANYL
     Dosage: 50 MICROGRAM, Q1HR
     Route: 062
  17. GABAPENTIN [Suspect]
     Active Substance: GABAPENTIN
     Dosage: 0.3 G, TID
     Route: 065
     Dates: start: 201603, end: 2016
  18. GABAPENTIN [Suspect]
     Active Substance: GABAPENTIN
     Dosage: 150 MG, QD
     Route: 065
     Dates: start: 2014
  19. GABAPENTIN [Suspect]
     Active Substance: GABAPENTIN
     Indication: Pain
     Route: 065
  20. GABAPENTIN [Suspect]
     Active Substance: GABAPENTIN
     Route: 065
  21. KETOPROFEN [Suspect]
     Active Substance: KETOPROFEN
     Indication: Pain
     Dosage: 100 MILLIGRAM, BID
     Route: 065
     Dates: start: 201603
  22. KETOPROFEN [Suspect]
     Active Substance: KETOPROFEN
     Dosage: 100 MILLIGRAM, BID -MAR-2016
     Route: 065
     Dates: start: 201605
  23. LEUPROLIDE ACETATE [Suspect]
     Active Substance: LEUPROLIDE ACETATE
     Indication: Hormone therapy
     Dosage: UNK, Q3MO
     Route: 065
  24. LEUPROLIDE ACETATE [Suspect]
     Active Substance: LEUPROLIDE ACETATE
     Indication: Prostate cancer
     Route: 065
  25. MORPHINE SULFATE [Suspect]
     Active Substance: MORPHINE SULFATE
     Indication: Pain
     Dosage: 0.02 G, QID (FAST-RELEASE)
     Route: 048
     Dates: start: 201603
  26. MORPHINE SULFATE [Suspect]
     Active Substance: MORPHINE SULFATE
     Indication: Cancer pain
     Route: 065
  27. ACETAMINOPHEN\TRAMADOL [Suspect]
     Active Substance: ACETAMINOPHEN\TRAMADOL
     Dosage: 1 DOSAGE FORM TRAMADOL HYDROCHLORIDE/ PARACETAMOL 75/650 MG/MG, QID, AS NEEDED
     Route: 065
  28. ACETAMINOPHEN\TRAMADOL [Suspect]
     Active Substance: ACETAMINOPHEN\TRAMADOL
     Indication: Analgesic therapy
     Route: 065
  29. TRAMADOL [Suspect]
     Active Substance: TRAMADOL
     Indication: Pain
     Dosage: 37.5 MG, QD
     Route: 065
  30. TRAMADOL HYDROCHLORIDE [Suspect]
     Active Substance: TRAMADOL HYDROCHLORIDE
     Indication: Pain
     Route: 065
  31. ABIRATERONE [Concomitant]
     Active Substance: ABIRATERONE
     Indication: Product used for unknown indication
     Route: 065
     Dates: start: 201403
  32. ABIRATERONE ACETATE [Concomitant]
     Active Substance: ABIRATERONE ACETATE
     Indication: Product used for unknown indication
     Route: 065
     Dates: start: 201403
  33. CHOLECALCIFEROL [Concomitant]
     Active Substance: CHOLECALCIFEROL
     Indication: Product used for unknown indication
     Dosage: 4000.000[IU] INTERNATION UNIT(S) QD
     Route: 065
     Dates: start: 201603
  34. DENOSUMAB [Concomitant]
     Active Substance: DENOSUMAB
     Indication: Prostate cancer
     Route: 065
     Dates: start: 201603
  35. DEXKETOPROFEN [Concomitant]
     Active Substance: DEXKETOPROFEN
     Dosage: 1 DF, UP TO 3 TIMES PER DAY
     Route: 065
  36. DEXKETOPROFEN [Concomitant]
     Active Substance: DEXKETOPROFEN
     Dosage: 1 DOSAGE FORM, TID
     Route: 065
  37. DEXKETOPROFEN [Concomitant]
     Active Substance: DEXKETOPROFEN
     Dosage: 1 DOSAGE FORM, TID
     Route: 065
  38. DEXKETOPROFEN [Concomitant]
     Active Substance: DEXKETOPROFEN
     Dosage: 1 DOSAGE FORM, TID
     Route: 065
  39. DEXKETOPROFEN [Concomitant]
     Active Substance: DEXKETOPROFEN
     Indication: Product used for unknown indication
     Dosage: 1 DOSAGE FORM, TID
     Route: 065
  40. DEXKETOPROFEN [Concomitant]
     Active Substance: DEXKETOPROFEN
     Route: 065
  41. DEXKETOPROFEN [Concomitant]
     Active Substance: DEXKETOPROFEN
     Route: 065
  42. DEXKETOPROFEN [Concomitant]
     Active Substance: DEXKETOPROFEN
     Route: 065
  43. DEXKETOPROFEN [Concomitant]
     Active Substance: DEXKETOPROFEN
     Route: 065
  44. DEXKETOPROFEN [Concomitant]
     Active Substance: DEXKETOPROFEN
     Route: 065
  45. DEXKETOPROFEN [Concomitant]
     Active Substance: DEXKETOPROFEN
     Route: 065
  46. DEXKETOPROFEN [Concomitant]
     Active Substance: DEXKETOPROFEN
     Route: 065
  47. DEXKETOPROFEN [Concomitant]
     Active Substance: DEXKETOPROFEN
     Route: 065
  48. DEXKETOPROFEN [Concomitant]
     Active Substance: DEXKETOPROFEN
     Route: 065
  49. DEXKETOPROFEN [Concomitant]
     Active Substance: DEXKETOPROFEN
     Route: 065
  50. DEXKETOPROFEN [Concomitant]
     Active Substance: DEXKETOPROFEN
     Route: 065
  51. DEXKETOPROFEN [Concomitant]
     Active Substance: DEXKETOPROFEN
     Route: 065
  52. DEXKETOPROFEN [Concomitant]
     Active Substance: DEXKETOPROFEN
     Route: 065
  53. DEXKETOPROFEN [Concomitant]
     Active Substance: DEXKETOPROFEN
     Route: 065
  54. DEXKETOPROFEN [Concomitant]
     Active Substance: DEXKETOPROFEN
     Route: 065
  55. GABAPENTIN [Concomitant]
     Active Substance: GABAPENTIN
     Indication: Product used for unknown indication
     Dosage: 150.000MG QD
     Route: 065
  56. GABAPENTIN [Concomitant]
     Active Substance: GABAPENTIN
     Dosage: 900.000MG QD
     Route: 065
  57. IRON [Concomitant]
     Active Substance: IRON
     Indication: Product used for unknown indication
     Route: 065
  58. IRON [Concomitant]
     Active Substance: IRON
     Route: 065
  59. IRON [Concomitant]
     Active Substance: IRON
     Route: 065
  60. IRON [Concomitant]
     Active Substance: IRON
     Route: 065
  61. IRON [Concomitant]
     Active Substance: IRON
     Route: 065
  62. IRON [Concomitant]
     Active Substance: IRON
     Route: 065
  63. IRON [Concomitant]
     Active Substance: IRON
     Route: 065
  64. IRON [Concomitant]
     Active Substance: IRON
     Route: 065
  65. KETOPROFEN [Concomitant]
     Active Substance: KETOPROFEN
     Indication: Pain
     Dosage: 200.000MG QD
     Route: 065
  66. METAMIZOLE [Concomitant]
     Active Substance: METAMIZOLE
     Indication: Product used for unknown indication
     Dosage: 2 DF, UP TO 4 TIMES PER DAY
     Route: 065
  67. MORPHINE [Concomitant]
     Active Substance: MORPHINE
     Indication: Pain
     Dosage: 0.02 GRAM, QID
     Route: 048
     Dates: start: 201603
  68. MORPHINE [Concomitant]
     Active Substance: MORPHINE
     Dosage: 0.02 GRAM, QID
     Route: 048
     Dates: start: 201603
  69. MORPHINE [Concomitant]
     Active Substance: MORPHINE
     Dosage: 0.02 GRAM, QID
     Route: 048
     Dates: start: 201603
  70. MORPHINE [Concomitant]
     Active Substance: MORPHINE
     Dosage: 0.02 GRAM, QID
     Route: 048
     Dates: start: 201603
  71. MORPHINE [Concomitant]
     Active Substance: MORPHINE
     Dosage: 0.02 GRAM, QID
     Route: 048
     Dates: start: 201603
  72. MORPHINE [Concomitant]
     Active Substance: MORPHINE
     Dosage: 0.02 GRAM, QID
     Route: 048
     Dates: start: 201603
  73. MORPHINE [Concomitant]
     Active Substance: MORPHINE
     Dosage: 0.8 G, QD
     Route: 048
     Dates: start: 201603
  74. MORPHINE [Concomitant]
     Active Substance: MORPHINE
     Indication: Cancer pain
     Route: 065
     Dates: start: 201603
  75. NIMESULIDE [Concomitant]
     Active Substance: NIMESULIDE
     Route: 065
  76. NIMESULIDE [Concomitant]
     Active Substance: NIMESULIDE
     Route: 065
  77. NIMESULIDE [Concomitant]
     Active Substance: NIMESULIDE
     Route: 065
  78. NIMESULIDE [Concomitant]
     Active Substance: NIMESULIDE
     Route: 065
  79. NIMESULIDE [Concomitant]
     Active Substance: NIMESULIDE
     Route: 065
  80. NIMESULIDE [Concomitant]
     Active Substance: NIMESULIDE
     Route: 065
  81. NIMESULIDE [Concomitant]
     Active Substance: NIMESULIDE
     Route: 065
  82. NIMESULIDE [Concomitant]
     Active Substance: NIMESULIDE
     Route: 065
  83. NIMESULIDE [Concomitant]
     Active Substance: NIMESULIDE
     Indication: Product used for unknown indication
     Route: 065
  84. NIMESULIDE [Concomitant]
     Active Substance: NIMESULIDE
     Route: 065
  85. NIMESULIDE [Concomitant]
     Active Substance: NIMESULIDE
     Route: 065
  86. NIMESULIDE [Concomitant]
     Active Substance: NIMESULIDE
     Route: 065
  87. NIMESULIDE [Concomitant]
     Active Substance: NIMESULIDE
     Route: 065
  88. NIMESULIDE [Concomitant]
     Active Substance: NIMESULIDE
     Route: 065
  89. NIMESULIDE [Concomitant]
     Active Substance: NIMESULIDE
     Route: 065
  90. NIMESULIDE [Concomitant]
     Active Substance: NIMESULIDE
     Route: 065
  91. NIMESULIDE [Concomitant]
     Active Substance: NIMESULIDE
     Route: 065
  92. NIMESULIDE [Concomitant]
     Active Substance: NIMESULIDE
     Route: 065
  93. NIMESULIDE [Concomitant]
     Active Substance: NIMESULIDE
     Route: 065
  94. NIMESULIDE [Concomitant]
     Active Substance: NIMESULIDE
     Route: 065
  95. NIMESULIDE [Concomitant]
     Active Substance: NIMESULIDE
     Route: 065
  96. PREGABALIN [Concomitant]
     Active Substance: PREGABALIN
     Dosage: 0.15 GRAM, BIDUNK
     Route: 065
  97. PREGABALIN [Concomitant]
     Active Substance: PREGABALIN
     Dosage: 0.15 GRAM, BIDUNK
     Route: 065
  98. PREGABALIN [Concomitant]
     Active Substance: PREGABALIN
     Dosage: 0.15 GRAM, BIDUNK
     Route: 065
  99. PREGABALIN [Concomitant]
     Active Substance: PREGABALIN
     Indication: Product used for unknown indication
     Dosage: 0.15 GRAM, QD
     Route: 065
  100. PREGABALIN [Concomitant]
     Active Substance: PREGABALIN
     Dosage: 0.15 GRAM, QDUNK
     Route: 065
  101. PREGABALIN [Concomitant]
     Active Substance: PREGABALIN
     Dosage: 0.15 GRAM, QDUNK
     Route: 065
  102. PREGABALIN [Concomitant]
     Active Substance: PREGABALIN
     Dosage: 0.15 GRAM, QDUNK
     Route: 065
  103. PREGABALIN [Concomitant]
     Active Substance: PREGABALIN
     Dosage: 0.15 G, BID
     Route: 065
  104. PREGABALIN [Concomitant]
     Active Substance: PREGABALIN
     Route: 065
  105. TAPENTADOL [Concomitant]
     Active Substance: TAPENTADOL
     Dosage: 0.1 MG, QD (0.05 G, 2X PER DAY (SLOW-RELEASE)
     Route: 065
  106. TAPENTADOL [Concomitant]
     Active Substance: TAPENTADOL
     Dosage: 0.1 MG, QD (0.05 G, 2X PER DAY (SLOW-RELEASE)
     Route: 065
  107. TAPENTADOL [Concomitant]
     Active Substance: TAPENTADOL
     Dosage: 0.1 MG, QD (0.05 G, 2X PER DAY (SLOW-RELEASE)
     Route: 065
  108. TAPENTADOL [Concomitant]
     Active Substance: TAPENTADOL
     Dosage: 0.1 MG, QD (0.05 G, 2X PER DAY (SLOW-RELEASE)
     Route: 065
  109. TAPENTADOL [Concomitant]
     Active Substance: TAPENTADOL
     Dosage: 0.1 MG, QD (0.05 G, 2X PER DAY (SLOW-RELEASE)
     Route: 065
  110. TAPENTADOL [Concomitant]
     Active Substance: TAPENTADOL
     Dosage: 0.1 MG, QD (0.05 G, 2X PER DAY (SLOW-RELEASE)
     Route: 065
  111. TAPENTADOL [Concomitant]
     Active Substance: TAPENTADOL
     Dosage: 0.1 MG, QD (0.05 G, 2X PER DAY (SLOW-RELEASE)
     Route: 065
  112. TAPENTADOL [Concomitant]
     Active Substance: TAPENTADOL
     Dosage: 0.1 MG, QD (0.05 G, 2X PER DAY (SLOW-RELEASE)
     Route: 065
  113. TAPENTADOL [Concomitant]
     Active Substance: TAPENTADOL
     Dosage: 0.1 MG, QD (0.05 G, 2X PER DAY (SLOW-RELEASE)
     Route: 065
  114. TAPENTADOL [Concomitant]
     Active Substance: TAPENTADOL
     Dosage: 0.1 MG, QD (0.05 G, 2X PER DAY (SLOW-RELEASE)
     Route: 065
  115. TAPENTADOL [Concomitant]
     Active Substance: TAPENTADOL
     Dosage: 0.1 MG, QD (0.05 G, 2X PER DAY (SLOW-RELEASE)
     Route: 065
  116. TAPENTADOL [Concomitant]
     Active Substance: TAPENTADOL
     Dosage: 0.1 MG, QD (0.05 G, 2X PER DAY (SLOW-RELEASE)
     Route: 065
  117. TAPENTADOL [Concomitant]
     Active Substance: TAPENTADOL
     Dosage: 0.1 MG, QD (0.05 G, 2X PER DAY (SLOW-RELEASE)
     Route: 065
  118. TAPENTADOL [Concomitant]
     Active Substance: TAPENTADOL
     Dosage: 0.1 MILLIGRAM, QD
     Route: 065
  119. TAPENTADOL [Concomitant]
     Active Substance: TAPENTADOL
     Dosage: 0.1 MILLIGRAM, QD
     Route: 065
  120. TAPENTADOL [Concomitant]
     Active Substance: TAPENTADOL
     Dosage: 0.1 MILLIGRAM, QD
     Route: 065
  121. TAPENTADOL [Concomitant]
     Active Substance: TAPENTADOL
     Indication: Product used for unknown indication
     Dosage: 100 MG, QD
     Route: 065
  122. TAPENTADOL [Concomitant]
     Active Substance: TAPENTADOL
     Dosage: 100 MILLIGRAM, QD
     Route: 065
  123. TAPENTADOL [Concomitant]
     Active Substance: TAPENTADOL
     Dosage: 100 MILLIGRAM, QD
     Route: 065
  124. TAPENTADOL [Concomitant]
     Active Substance: TAPENTADOL
     Dosage: 100 MILLIGRAM, QD
     Route: 065
  125. TAPENTADOL [Concomitant]
     Active Substance: TAPENTADOL
     Dosage: 100 MILLIGRAM, QD
     Route: 065
  126. TAPENTADOL [Concomitant]
     Active Substance: TAPENTADOL
     Dosage: 100 MILLIGRAM, QD
     Route: 065
  127. TAPENTADOL [Concomitant]
     Active Substance: TAPENTADOL
     Dosage: 100 MILLIGRAM, QD
     Route: 065
  128. TAPENTADOL [Concomitant]
     Active Substance: TAPENTADOL
     Dosage: 100 MILLIGRAM, QD
     Route: 065
  129. TAPENTADOL [Concomitant]
     Active Substance: TAPENTADOL
     Dosage: 100 MILLIGRAM, QD
     Route: 065
  130. TAPENTADOL [Concomitant]
     Active Substance: TAPENTADOL
     Dosage: 100 MILLIGRAM, QD
     Route: 065
  131. TAPENTADOL [Concomitant]
     Active Substance: TAPENTADOL
     Dosage: 100 MILLIGRAM, QD
     Route: 065
  132. TAPENTADOL [Concomitant]
     Active Substance: TAPENTADOL
     Dosage: 100 MILLIGRAM, QD
     Route: 065
  133. TAPENTADOL [Concomitant]
     Active Substance: TAPENTADOL
     Dosage: 100 MILLIGRAM, QD
     Route: 065
  134. TAPENTADOL [Concomitant]
     Active Substance: TAPENTADOL
     Dosage: 150 MG, QD
     Route: 065
  135. TAPENTADOL [Concomitant]
     Active Substance: TAPENTADOL
     Dosage: 150 MILLIGRAM, QD
     Route: 065
  136. TAPENTADOL [Concomitant]
     Active Substance: TAPENTADOL
     Dosage: 150 MILLIGRAM, QD
     Route: 065
  137. TAPENTADOL [Concomitant]
     Active Substance: TAPENTADOL
     Dosage: 150 MILLIGRAM, QD
     Route: 065
  138. TAPENTADOL [Concomitant]
     Active Substance: TAPENTADOL
     Dosage: 150 MILLIGRAM, QD
     Route: 065
  139. TAPENTADOL [Concomitant]
     Active Substance: TAPENTADOL
     Dosage: 150 MILLIGRAM, QD
     Route: 065
  140. TAPENTADOL [Concomitant]
     Active Substance: TAPENTADOL
     Dosage: 150 MILLIGRAM, QD
     Route: 065
  141. TAPENTADOL [Concomitant]
     Active Substance: TAPENTADOL
     Dosage: 150 MILLIGRAM, QD
     Route: 065
  142. TAPENTADOL [Concomitant]
     Active Substance: TAPENTADOL
     Dosage: 150 MILLIGRAM, QD
     Route: 065
  143. TAPENTADOL [Concomitant]
     Active Substance: TAPENTADOL
     Dosage: 150 MILLIGRAM, QD
     Route: 065
  144. TAPENTADOL [Concomitant]
     Active Substance: TAPENTADOL
     Dosage: 150 MILLIGRAM, QD
     Route: 065
  145. TAPENTADOL [Concomitant]
     Active Substance: TAPENTADOL
     Dosage: 150 MILLIGRAM, QD
     Route: 065
  146. TAPENTADOL [Concomitant]
     Active Substance: TAPENTADOL
     Dosage: 150 MILLIGRAM, QD
     Route: 065
  147. TAPENTADOL [Concomitant]
     Active Substance: TAPENTADOL
     Dosage: 150 MILLIGRAM, QD
     Route: 065
  148. TAPENTADOL [Concomitant]
     Active Substance: TAPENTADOL
     Dosage: 150 MILLIGRAM, QD
     Route: 065
  149. TAPENTADOL [Concomitant]
     Active Substance: TAPENTADOL
     Dosage: 150 MILLIGRAM, QD
     Route: 065
  150. TAPENTADOL [Concomitant]
     Active Substance: TAPENTADOL
     Indication: Polyneuropathy
     Route: 065
  151. TAPENTADOL [Concomitant]
     Active Substance: TAPENTADOL
     Route: 065
  152. TAPENTADOL [Concomitant]
     Active Substance: TAPENTADOL
     Route: 065
  153. TAPENTADOL [Concomitant]
     Active Substance: TAPENTADOL
     Route: 065
  154. TAPENTADOL [Concomitant]
     Active Substance: TAPENTADOL
     Route: 065
  155. VITAMIN D3 [Concomitant]
     Active Substance: CHOLECALCIFEROL
     Indication: Product used for unknown indication
     Dosage: 4000 INTERNATIONAL UNIT, QD
     Route: 065
     Dates: start: 201603
  156. VITAMIN D3 [Concomitant]
     Active Substance: CHOLECALCIFEROL
     Dosage: 4000 INTERNATIONAL UNIT, QD
     Route: 065
     Dates: start: 201603
  157. VITAMIN D3 [Concomitant]
     Active Substance: CHOLECALCIFEROL
     Dosage: 4000 INTERNATIONAL UNIT, QD
     Route: 065
     Dates: start: 201603
  158. VITAMIN D3 [Concomitant]
     Active Substance: CHOLECALCIFEROL
     Dosage: 4000 INTERNATIONAL UNIT, QD
     Route: 065
     Dates: start: 201603
  159. VITAMIN D3 [Concomitant]
     Active Substance: CHOLECALCIFEROL
     Dosage: 4000 INTERNATIONAL UNIT, QDFIRST ADMIN DATE: 2016-03
     Route: 005
     Dates: start: 201603
  160. VITAMIN D3 [Concomitant]
     Active Substance: CHOLECALCIFEROL
     Route: 065

REACTIONS (23)
  - Chronic kidney disease [Fatal]
  - Confusional state [Fatal]
  - Polyneuropathy in malignant disease [Fatal]
  - Decreased appetite [Fatal]
  - Allodynia [Fatal]
  - Constipation [Fatal]
  - Dermatitis allergic [Fatal]
  - Polyneuropathy [Fatal]
  - Quality of life decreased [Fatal]
  - Drug ineffective [Fatal]
  - Confusional state [Fatal]
  - Decreased appetite [Fatal]
  - Metastases to lung [Unknown]
  - Hyperaesthesia [Recovered/Resolved]
  - Anaemia [Unknown]
  - Toxicity to various agents [Recovered/Resolved]
  - Metastases to bone [Unknown]
  - Prostate cancer [Unknown]
  - Malignant neoplasm progression [Unknown]
  - Drug dependence [Recovered/Resolved]
  - Neuropathy peripheral [Not Recovered/Not Resolved]
  - Pain [Unknown]
  - Product use in unapproved indication [Unknown]

NARRATIVE: CASE EVENT DATE: 20160101
